FAERS Safety Report 11434486 (Version 2)
Quarter: 2015Q3

REPORT INFORMATION
  Report Type: Spontaneous
  Country: JP (occurrence: JP)
  Receive Date: 20150831
  Receipt Date: 20150911
  Transmission Date: 20151125
  Serious: Yes (Hospitalization)
  Sender: FDA-Public Use
  Company Number: JP-ASTRAZENECA-2015SE83567

PATIENT
  Age: 77 Year
  Sex: Male

DRUGS (2)
  1. MEROPEN [Suspect]
     Active Substance: MEROPENEM
     Route: 042
  2. ROCEPHIN [Suspect]
     Active Substance: CEFTRIAXONE SODIUM
     Route: 042

REACTIONS (8)
  - Thrombotic cerebral infarction [Unknown]
  - Ascites [Unknown]
  - Hemiplegia [Unknown]
  - Disuse syndrome [Unknown]
  - Clostridium difficile colitis [Unknown]
  - Respiration abnormal [Unknown]
  - Jarisch-Herxheimer reaction [Unknown]
  - Tremor [Unknown]
